FAERS Safety Report 20097658 (Version 1)
Quarter: 2021Q4

REPORT INFORMATION
  Report Type: Spontaneous
  Country: CN (occurrence: CN)
  Receive Date: 20211122
  Receipt Date: 20211122
  Transmission Date: 20220303
  Serious: Yes (Other)
  Sender: FDA-Public Use
  Company Number: CN-PFIZER INC-202101549311

PATIENT
  Age: 54 Year
  Sex: Female
  Weight: 52.5 kg

DRUGS (2)
  1. CRIZOTINIB [Suspect]
     Active Substance: CRIZOTINIB
     Indication: Lung neoplasm malignant
     Dosage: 0.2 G, 2X/DAY
     Route: 048
     Dates: start: 20191127, end: 20210530
  2. CRIZOTINIB [Suspect]
     Active Substance: CRIZOTINIB
     Dosage: 0.25 G, 2X/DAY
     Route: 048
     Dates: start: 20210531, end: 20211015

REACTIONS (1)
  - Granulocyte count decreased [Recovering/Resolving]

NARRATIVE: CASE EVENT DATE: 20211015
